FAERS Safety Report 9311886 (Version 1)
Quarter: 2013Q2

REPORT INFORMATION
  Report Type: Spontaneous
  Country: US (occurrence: US)
  Receive Date: 20130528
  Receipt Date: 20130528
  Transmission Date: 20140414
  Serious: Yes (Other)
  Sender: FDA-Public Use
  Company Number: PHEH2013US011471

PATIENT
  Sex: Female

DRUGS (3)
  1. EXELON PATCH [Suspect]
     Dosage: 4.6 MG, UNK
     Route: 062
  2. COR [Concomitant]
     Dosage: UNK UKN, UNK
  3. BABY ASPIRIN [Concomitant]
     Dosage: UNK UKN, UNK

REACTIONS (2)
  - Cataract [Not Recovered/Not Resolved]
  - Eye infection [Unknown]
